FAERS Safety Report 21902565 (Version 6)
Quarter: 2023Q1

REPORT INFORMATION
  Report Type: Report from Study
  Country: JP (occurrence: None)
  Receive Date: 20230124
  Receipt Date: 20230213
  Transmission Date: 20230417
  Serious: Yes (Hospitalization)
  Sender: FDA-Public Use
  Company Number: JP-ROCHE-3266585

PATIENT
  Age: 65 Year
  Sex: Male
  Weight: 64.5 kg

DRUGS (15)
  1. MOSUNETUZUMAB [Suspect]
     Active Substance: MOSUNETUZUMAB
     Indication: Non-Hodgkin^s lymphoma
     Dosage: ON 25-NOV-2022 1:43 PM TO 3:42 PM, THE PATIENT WAS RECEIVED MOST RECENT DOSE OF MOSUNETUZUMAB AT 30
     Route: 042
     Dates: start: 20220113
  2. LENALIDOMIDE [Suspect]
     Active Substance: LENALIDOMIDE
     Indication: Non-Hodgkin^s lymphoma
     Dosage: ON 17/NOV/2022 8:30 AM, THE PATIENT WAS RECEIVED MOST RECENT DOSE OF LENALIDOMIDE AT 15 MG PRIOR TO
     Route: 048
     Dates: start: 20220204
  3. LIMAPROST [Concomitant]
     Active Substance: LIMAPROST
     Indication: Tinnitus
     Route: 048
     Dates: start: 202104
  4. SANSONINTO [Concomitant]
     Indication: Tinnitus
     Route: 048
     Dates: start: 202104
  5. FINASTERIDE [Concomitant]
     Active Substance: FINASTERIDE
     Route: 048
     Dates: start: 2019, end: 20230115
  6. MINOXIDIL [Concomitant]
     Active Substance: MINOXIDIL
     Route: 048
     Dates: start: 2019, end: 20230115
  7. CALCIUM SULFATE\HERBALS [Concomitant]
     Active Substance: CALCIUM SULFATE\HERBALS
     Indication: Tinnitus
     Route: 048
     Dates: start: 202104
  8. ASPIRIN [Concomitant]
     Active Substance: ASPIRIN
     Indication: Thrombosis
     Route: 048
     Dates: start: 20220205, end: 20221209
  9. CALONAL [Concomitant]
     Active Substance: ACETAMINOPHEN
     Indication: Post herpetic neuralgia
     Route: 048
     Dates: start: 20220113, end: 20221125
  10. CALONAL [Concomitant]
     Active Substance: ACETAMINOPHEN
     Route: 048
     Dates: start: 20220913
  11. DIPHENHYDRAMINE [Concomitant]
     Active Substance: DIPHENHYDRAMINE
     Route: 048
     Dates: start: 20220113, end: 20221125
  12. PREDONINE [Concomitant]
     Active Substance: PREDNISOLONE
     Route: 042
     Dates: start: 20220113, end: 20221125
  13. LOCOID [Concomitant]
     Active Substance: HYDROCORTISONE BUTYRATE
     Indication: Rash
     Route: 061
     Dates: start: 20220810, end: 20221202
  14. SULFAMETHOXAZOLE\TRIMETHOPRIM [Concomitant]
     Active Substance: SULFAMETHOXAZOLE\TRIMETHOPRIM
     Route: 048
     Dates: start: 20220921
  15. ACYCLOVIR [Concomitant]
     Active Substance: ACYCLOVIR
     Route: 048
     Dates: start: 20220913

REACTIONS (1)
  - COVID-19 [Recovered/Resolved]

NARRATIVE: CASE EVENT DATE: 20221223
